FAERS Safety Report 9999588 (Version 2)
Quarter: 2014Q2

REPORT INFORMATION
  Report Type: Spontaneous
  Country: NL (occurrence: NL)
  Receive Date: 20140312
  Receipt Date: 20140401
  Transmission Date: 20141212
  Serious: Yes (Hospitalization)
  Sender: FDA-Public Use
  Company Number: NL-NOVOPROD-401885

PATIENT
  Age: 69 Year
  Sex: Male

DRUGS (4)
  1. VICTOZA [Suspect]
     Indication: PRODUCT USED FOR UNKNOWN INDICATION
     Dosage: 0.6 MG, QD
     Route: 058
     Dates: start: 201402
  2. VICTOZA [Suspect]
     Dosage: 1.2 MG, QD
     Route: 058
     Dates: end: 201402
  3. CODEINE [Concomitant]
     Dosage: 3 TIMES PER DAY AS NECESSARY
     Route: 048
  4. INSULIN ASPART [Concomitant]
     Dosage: UNK
     Route: 065

REACTIONS (3)
  - Dehydration [Recovering/Resolving]
  - Nausea [Unknown]
  - Diarrhoea [Unknown]
